FAERS Safety Report 4961883-X (Version None)
Quarter: 2006Q2

REPORT INFORMATION
  Report Type: 
  Country: None (occurrence: None)
  Receive Date: 20060404
  Receipt Date: 20051114
  Transmission Date: 20061013
  Serious: Yes (Death, Hospitalization)
  Sender: FDA-Public Use
  Company Number: DE-AVENTIS-200512593DE

PATIENT
  Age: 63 Year
  Sex: Male
  Weight: 71 kg

DRUGS (8)
  1. TAXOTERE [Suspect]
     Indication: PROSTATE CANCER
     Dates: start: 20040212, end: 20040427
  2. TAXOTERE [Suspect]
     Dates: start: 20050509, end: 20050615
  3. TAXOTERE [Suspect]
     Dates: start: 20040212, end: 20040427
  4. TAXOTERE [Suspect]
     Dates: start: 20050509, end: 20050615
  5. ESTRACYT [Concomitant]
     Indication: PROSTATE CANCER
     Dates: start: 20010901, end: 20021101
  6. VELBE [Concomitant]
     Indication: PROSTATE CANCER
     Dates: start: 20020819, end: 20021101
  7. TURISTERON [Concomitant]
     Indication: PROSTATE CANCER
     Dates: start: 20021101, end: 20030301
  8. DEXAMETHASONE [Concomitant]
     Indication: PROSTATE CANCER
     Dates: start: 20021101, end: 20030301

REACTIONS (16)
  - ACUTE MYELOID LEUKAEMIA [None]
  - ANOREXIA [None]
  - CONDITION AGGRAVATED [None]
  - DIARRHOEA [None]
  - DISEASE PROGRESSION [None]
  - DYSGEUSIA [None]
  - HYPOAESTHESIA ORAL [None]
  - LEFT VENTRICULAR FAILURE [None]
  - LUNG ADENOCARCINOMA [None]
  - METASTASES TO BONE MARROW [None]
  - MIDDLE EAR EFFUSION [None]
  - PYREXIA [None]
  - SHOCK [None]
  - STRABISMUS [None]
  - SUBDURAL HAEMATOMA [None]
  - ULCER HAEMORRHAGE [None]
